FAERS Safety Report 17611525 (Version 1)
Quarter: 2020Q2

REPORT INFORMATION
  Report Type: Report from Study
  Country: US (occurrence: US)
  Receive Date: 20200401
  Receipt Date: 20200401
  Transmission Date: 20200713
  Serious: No
  Sender: FDA-Public Use
  Company Number: US-RETROPHIN, INC.-2019RTN00055

PATIENT
  Sex: Female
  Weight: 19 kg

DRUGS (1)
  1. CHOLBAM [Suspect]
     Active Substance: CHOLIC ACID
     Indication: CEREBROHEPATORENAL SYNDROME
     Dosage: 200 MG, 1X/DAY
     Dates: start: 20150611, end: 201906

REACTIONS (2)
  - Gastrointestinal disorder [Unknown]
  - Agitation [Recovered/Resolved]
